FAERS Safety Report 5906827-9 (Version None)
Quarter: 2008Q4

REPORT INFORMATION
  Report Type: 
  Country: None (occurrence: None)
  Receive Date: 20081002
  Receipt Date: 20080919
  Transmission Date: 20090506
  Serious: Yes (Other)
  Sender: FDA-Public Use
  Company Number: GB-ELI_LILLY_AND_COMPANY-GB200807000634

PATIENT
  Sex: Female
  Weight: 42 kg

DRUGS (5)
  1. HUMULIN 70/30 [Suspect]
     Indication: TYPE 1 DIABETES MELLITUS
     Dosage: 24 IU, EACH MORNING
     Route: 058
     Dates: start: 20080509, end: 20080627
  2. HUMULIN 70/30 [Suspect]
     Dosage: 7 IU, EACH EVENING
     Route: 058
     Dates: start: 20080509, end: 20080627
  3. HUMALOG [Suspect]
     Indication: TYPE 1 DIABETES MELLITUS
     Dosage: 30 IU, DAILY (1/D)
     Route: 058
     Dates: start: 20080627
  4. NOVOLOG MIX 70/30 [Concomitant]
     Indication: TYPE 1 DIABETES MELLITUS
     Dosage: 19 IU, DAILY (1/D)
     Route: 058
     Dates: start: 20080206, end: 20080101
  5. NOVOLOG MIX 70/30 [Concomitant]
     Dosage: 30 IU, DAILY (1/D)
     Route: 058
     Dates: start: 20080101, end: 20080509

REACTIONS (5)
  - EMOTIONAL DISTRESS [None]
  - INJECTION SITE ERYTHEMA [None]
  - INJECTION SITE HAEMATOMA [None]
  - INJECTION SITE MASS [None]
  - INJECTION SITE PAIN [None]
